FAERS Safety Report 4494036-2 (Version None)
Quarter: 2004Q4

REPORT INFORMATION
  Report Type: 
  Country: None (occurrence: None)
  Receive Date: 20041105
  Receipt Date: 20040908
  Transmission Date: 20050328
  Serious: Yes (Other)
  Sender: FDA-Public Use
  Company Number: JP-MERCK-0409USA01022

PATIENT
  Age: 58 Year
  Sex: Female

DRUGS (2)
  1. ZOCOR [Suspect]
     Indication: HYPERLIPIDAEMIA
     Route: 048
     Dates: end: 20030101
  2. WARFARIN SODIUM [Suspect]
     Route: 065

REACTIONS (5)
  - BLOOD GLUCOSE INCREASED [None]
  - CARDIAC FAILURE ACUTE [None]
  - DIZZINESS [None]
  - DRUG INTERACTION [None]
  - THROMBOSIS [None]
